FAERS Safety Report 5584696-7 (Version None)
Quarter: 2008Q1

REPORT INFORMATION
  Report Type: 
  Country: None (occurrence: None)
  Receive Date: 20080103
  Receipt Date: 20071221
  Transmission Date: 20080703
  Serious: Yes (Hospitalization, Other)
  Sender: FDA-Public Use
  Company Number: 2007-03764

PATIENT
  Age: 57 Year
  Sex: Male
  Weight: 52 kg

DRUGS (15)
  1. VELCADE [Suspect]
     Indication: MULTIPLE MYELOMA
     Dosage: 2.00 MG, INTRAVENOUS; 1.50 MG, INTRAVENOUS; 2.00 MG, INTRAVENOUS, INTRAVENOUS
     Route: 042
     Dates: start: 20071009, end: 20071019
  2. VELCADE [Suspect]
     Indication: MULTIPLE MYELOMA
     Dosage: 2.00 MG, INTRAVENOUS; 1.50 MG, INTRAVENOUS; 2.00 MG, INTRAVENOUS, INTRAVENOUS
     Route: 042
     Dates: start: 20071101, end: 20071112
  3. VELCADE [Suspect]
     Indication: MULTIPLE MYELOMA
     Dosage: 2.00 MG, INTRAVENOUS; 1.50 MG, INTRAVENOUS; 2.00 MG, INTRAVENOUS, INTRAVENOUS
     Route: 042
     Dates: start: 20071218, end: 20071218
  4. ACYCLOVIR [Concomitant]
  5. ALLOPURINOL [Concomitant]
  6. PETROLATUM OINTMENT, CREAM [Concomitant]
  7. VIDARABINE (VIDARABINE) [Concomitant]
  8. ALPROSTADIL [Concomitant]
  9. ZOMETA [Concomitant]
  10. DEXAMETHASONE TAB [Concomitant]
  11. OMEPRAL (OMEPRAZOLE) [Concomitant]
  12. MUCOSTA (REBAMIPIDE) [Concomitant]
  13. GAMIMUNE N 5% [Concomitant]
  14. NON PYRINE PREPARATION [Concomitant]
  15. LEVOFLOXACIN [Concomitant]

REACTIONS (6)
  - BONE MARROW FAILURE [None]
  - DIARRHOEA [None]
  - EPISTAXIS [None]
  - GASTRITIS HAEMORRHAGIC [None]
  - HAEMATOTOXICITY [None]
  - PNEUMONIA BACTERIAL [None]
